FAERS Safety Report 9604324 (Version 1)
Quarter: 2013Q4

REPORT INFORMATION
  Report Type: Report from Study
  Country: US (occurrence: US)
  Receive Date: 20131008
  Receipt Date: 20131008
  Transmission Date: 20140711
  Serious: Yes (Hospitalization, Other)
  Sender: FDA-Public Use
  Company Number: PHEH2013US020677

PATIENT
  Age: 55 Year
  Sex: Male

DRUGS (2)
  1. TASIGNA [Suspect]
     Indication: CHRONIC MYELOID LEUKAEMIA
     Dosage: 800 MG, BID
     Route: 048
     Dates: start: 201108
  2. TASIGNA [Suspect]
     Dosage: UNK

REACTIONS (8)
  - Brain hypoxia [Unknown]
  - Cerebral ischaemia [Unknown]
  - Unresponsive to stimuli [Recovering/Resolving]
  - Myocardial infarction [Recovering/Resolving]
  - Loss of consciousness [Unknown]
  - Anxiety [Unknown]
  - Asthenia [Unknown]
  - Fatigue [Unknown]
